FAERS Safety Report 12637525 (Version 4)
Quarter: 2016Q4

REPORT INFORMATION
  Report Type: Spontaneous
  Country: IT (occurrence: JP)
  Receive Date: 20160809
  Receipt Date: 20161205
  Transmission Date: 20170207
  Serious: Yes (Hospitalization, Other)
  Sender: FDA-Public Use
  Company Number: IT-SIGMA-TAU US-2016STPI000582

PATIENT
  Age: 11 Day
  Sex: Female
  Weight: 2.8 kg

DRUGS (6)
  1. INSULIN [Concomitant]
     Active Substance: INSULIN NOS
     Indication: BLOOD LACTIC ACID INCREASED
  2. CARNITOR [Suspect]
     Active Substance: LEVOCARNITINE
     Dosage: 100 MG, QD
     Route: 065
     Dates: start: 201509
  3. GLUCOSE 10 BAXTER [Suspect]
     Active Substance: DEXTROSE
     Indication: HYPOGLYCAEMIA
     Dosage: 12 ML, QD
     Route: 042
     Dates: start: 20150915, end: 20151010
  4. CARNITOR [Suspect]
     Active Substance: LEVOCARNITINE
     Indication: METHYLMALONIC ACIDURIA
     Dosage: 320 MG/KG, QD
     Route: 065
     Dates: start: 20150908, end: 20150925
  5. INSULIN [Concomitant]
     Active Substance: INSULIN NOS
     Indication: BLOOD GLUCOSE INCREASED
  6. VITAMIN B12 [Concomitant]
     Active Substance: CYANOCOBALAMIN
     Indication: METHYLMALONIC ACIDURIA

REACTIONS (3)
  - Respiratory acidosis [Recovered/Resolved]
  - Rhabdomyolysis [Recovered/Resolved]
  - Prescribed overdose [None]

NARRATIVE: CASE EVENT DATE: 201509
